FAERS Safety Report 5024698-2 (Version None)
Quarter: 2006Q2

REPORT INFORMATION
  Report Type: 
  Country: None (occurrence: None)
  Receive Date: 20060426
  Receipt Date: 20060309
  Transmission Date: 20061013
  Serious: Yes (Other)
  Sender: FDA-Public Use
  Company Number: 2006021506

PATIENT
  Age: 60 Year
  Sex: Female
  Weight: 58.9676 kg

DRUGS (5)
  1. LYRICA [Suspect]
     Indication: PAIN IN EXTREMITY
     Dosage: 75 MG (75 MG, 1 IN 1 D), ORAL
     Route: 048
     Dates: start: 20060113
  2. OXYCONTIN [Concomitant]
  3. CITALOPRAM HYDROBROMIDE [Concomitant]
  4. ATENOLOL [Concomitant]
  5. BACLOFEN [Concomitant]

REACTIONS (1)
  - PAIN IN EXTREMITY [None]
